FAERS Safety Report 6412535-0 (Version None)
Quarter: 2009Q4

REPORT INFORMATION
  Report Type: 
  Country: None (occurrence: None)
  Receive Date: 20091023
  Receipt Date: 20090820
  Transmission Date: 20100525
  Serious: No
  Sender: FDA-Public Use
  Company Number: US-BRISTOL-MYERS SQUIBB COMPANY-14750194

PATIENT

DRUGS (1)
  1. KENALOG-40 [Suspect]
     Dosage: RECEIVED 2 DOSES OF KENALOG 80 MG IM INJ ABT 10 DAYS APART
     Route: 058

REACTIONS (2)
  - INCORRECT ROUTE OF DRUG ADMINISTRATION [None]
  - NO ADVERSE EVENT [None]
